FAERS Safety Report 8915001 (Version 2)
Quarter: 2013Q2

REPORT INFORMATION
  Report Type: Other
  Country: GB (occurrence: GB)
  Receive Date: 20121116
  Receipt Date: 20130627
  Transmission Date: 20140414
  Serious: Yes (Death, Hospitalization)
  Sender: FDA-Public Use
  Company Number: GB-BRISTOL-MYERS SQUIBB COMPANY-17132770

PATIENT
  Age: 70 Year
  Sex: Male

DRUGS (1)
  1. METFORMIN HCL [Suspect]

REACTIONS (13)
  - Nosocomial infection [Fatal]
  - Pneumonia [Fatal]
  - Lactic acidosis [Fatal]
  - Suicide attempt [Not Recovered/Not Resolved]
  - Cardiac failure [Unknown]
  - Atrial fibrillation [Unknown]
  - Renal failure acute [Not Recovered/Not Resolved]
  - Anuria [Unknown]
  - Agitation [Unknown]
  - Confusional state [Unknown]
  - Abdominal pain [Unknown]
  - Vomiting [Unknown]
  - Intentional overdose [Not Recovered/Not Resolved]
